FAERS Safety Report 10666739 (Version 2)
Quarter: 2014Q4

REPORT INFORMATION
  Report Type: Spontaneous
  Country: AR (occurrence: AR)
  Receive Date: 20141222
  Receipt Date: 20141222
  Transmission Date: 20150529
  Serious: Yes (Congenital Anomaly, Other)
  Sender: FDA-Public Use
  Company Number: AR-ACCORD-027634

PATIENT
  Sex: Female
  Weight: 2.37 kg

DRUGS (5)
  1. PREDNISOLONE. [Suspect]
     Active Substance: PREDNISOLONE
     Indication: SYSTEMIC LUPUS ERYTHEMATOSUS
     Route: 064
  2. CALCIUM GLUCONATE. [Suspect]
     Active Substance: CALCIUM GLUCONATE
     Indication: SYSTEMIC LUPUS ERYTHEMATOSUS
     Route: 064
  3. MYCOPHENOLIC ACID. [Suspect]
     Active Substance: MYCOPHENOLIC ACID
     Indication: SYSTEMIC LUPUS ERYTHEMATOSUS
     Route: 064
  4. HYDROXYCHLOROQUINE [Suspect]
     Active Substance: HYDROXYCHLOROQUINE
     Indication: SYSTEMIC LUPUS ERYTHEMATOSUS
     Route: 064
  5. AZATHIOPRINE. [Suspect]
     Active Substance: AZATHIOPRINE
     Indication: SYSTEMIC LUPUS ERYTHEMATOSUS
     Route: 064

REACTIONS (9)
  - Patent ductus arteriosus [Unknown]
  - Coloboma [Unknown]
  - Foetal exposure during pregnancy [Unknown]
  - External auditory canal atresia [Unknown]
  - Spine malformation [Unknown]
  - Oesophageal atresia [Unknown]
  - Cleft lip and palate [Unknown]
  - Hypertelorism of orbit [Unknown]
  - Microtia [Unknown]
